FAERS Safety Report 4279561-1 (Version None)
Quarter: 2004Q1

REPORT INFORMATION
  Report Type: 
  Country: None (occurrence: None)
  Receive Date: 20040123
  Receipt Date: 20040116
  Transmission Date: 20041129
  Serious: Yes (Life-Threatening, Hospitalization)
  Sender: FDA-Public Use
  Company Number: 2002-08-0875

PATIENT
  Age: 49 Year
  Sex: Male

DRUGS (3)
  1. INTRON A [Suspect]
     Indication: HEPATITIS C
     Dosage: 6 MU QD INTRAMUSCULAR
     Route: 030
     Dates: start: 20020626, end: 20020710
  2. REBETOL [Suspect]
     Indication: HEPATITIS C
     Dosage: 800 MG QD ORAL
     Route: 048
     Dates: start: 20020626, end: 20020710
  3. URSDEOXYCHOLIC ACID [Concomitant]

REACTIONS (3)
  - CEREBRAL INFARCTION [None]
  - DYSARTHRIA [None]
  - DYSPHAGIA [None]
